FAERS Safety Report 11676271 (Version 1)
Quarter: 2015Q4

REPORT INFORMATION
  Report Type: Spontaneous
  Country: GB (occurrence: GB)
  Receive Date: 20151028
  Receipt Date: 20151028
  Transmission Date: 20160304
  Serious: Yes (Other)
  Sender: FDA-Public Use
  Company Number: GB-ENDO PHARMACEUTICALS INC.-2015-003598

PATIENT
  Sex: Male

DRUGS (1)
  1. AVEED [Suspect]
     Active Substance: TESTOSTERONE UNDECANOATE
     Indication: PRODUCT USED FOR UNKNOWN INDICATION
     Dosage: LAST INJECTION. PATIENT HAS TAKEN 4 INJECTIONS OVER THE PAST FEW MONTHS
     Route: 065
     Dates: start: 20150908, end: 20150908

REACTIONS (6)
  - Depression suicidal [Unknown]
  - Mood swings [Unknown]
  - Inappropriate schedule of drug administration [Unknown]
  - Unevaluable event [Unknown]
  - Affect lability [Unknown]
  - Aggression [Unknown]
